FAERS Safety Report 23516593 (Version 1)
Quarter: 2024Q1

REPORT INFORMATION
  Report Type: 
  Country: None (occurrence: None)
  Receive Date: 20240213
  Receipt Date: 20240213
  Transmission Date: 20240410
  Serious: No
  Sender: FDA-Public Use
  Company Number: KR-ROCHE-3478409

PATIENT
  Weight: 61.8 kg

DRUGS (28)
  1. RITUXIMAB [Suspect]
     Active Substance: RITUXIMAB
     Dates: start: 20230724, end: 20231115
  2. EPCORITAMAB [Suspect]
     Active Substance: EPCORITAMAB
     Dosage: 48 MG C1 (STEP-UP), CYCLES 2 - 4 (21-DAY CYCLE, WEEKLY DOSE), C5 - 8 (21-DAY CYCLE, EVERY 3 WEEKS) P
     Dates: start: 20230724, end: 20231115
  3. EPCORITAMAB [Suspect]
     Active Substance: EPCORITAMAB
     Dosage: 48 MG C1 (STEP-UP), CYCLES 2 - 4 (21-DAY CYCLE, WEEKLY DOSE), C5 - 8 (21-DAY CYCLE, EVERY 3 WEEKS) P
     Dates: start: 20231227, end: 20231227
  4. CYCLOPHOSPHAMIDE [Suspect]
     Active Substance: CYCLOPHOSPHAMIDE
     Dates: start: 20230724, end: 20231115
  5. DOXORUBICIN [Suspect]
     Active Substance: DOXORUBICIN
     Dates: start: 20230724, end: 20231115
  6. VINCRISTINE [Suspect]
     Active Substance: VINCRISTINE
     Dates: start: 20230724, end: 20231115
  7. PREDNISONE [Suspect]
     Active Substance: PREDNISONE
     Dosage: DAY 1-5 OF EACH CYCLE, EVERY 1 DAYS
     Dates: start: 20230724, end: 20231119
  8. LOSARTAN POTASSIUM [Concomitant]
     Active Substance: LOSARTAN POTASSIUM
     Dates: start: 2013
  9. ACYCLOVIR SODIUM [Concomitant]
     Active Substance: ACYCLOVIR SODIUM
     Dates: start: 20230724
  10. SULFAMETHOXAZOLE\TRIMETHOPRIM [Concomitant]
     Active Substance: SULFAMETHOXAZOLE\TRIMETHOPRIM
     Dates: start: 20230724
  11. ENTECAVIR [Concomitant]
     Active Substance: ENTECAVIR
     Dates: start: 20230724
  12. ACETAMINOPHEN [Concomitant]
     Active Substance: ACETAMINOPHEN
     Dates: start: 20230724
  13. ACETAMINOPHEN [Concomitant]
     Active Substance: ACETAMINOPHEN
     Dosage: AS NECESSARY
     Dates: start: 20231206
  14. CHLORPHENIRAMINE MALEATE [Concomitant]
     Active Substance: CHLORPHENIRAMINE MALEATE
     Dates: start: 20230724
  15. APREPITANT [Concomitant]
     Active Substance: APREPITANT
     Dates: start: 20230724
  16. PALONOSETRON HYDROCHLORIDE [Concomitant]
     Active Substance: PALONOSETRON HYDROCHLORIDE
     Dates: start: 20230724
  17. LANSOPRAZOLE [Concomitant]
     Active Substance: LANSOPRAZOLE
     Dates: start: 20230731
  18. TEGOPRAZAN [Concomitant]
     Active Substance: TEGOPRAZAN
     Dates: start: 20230731
  19. NYSTATIN [Concomitant]
     Active Substance: NYSTATIN
     Dates: start: 20230731
  20. LACTULOSE [Concomitant]
     Active Substance: LACTULOSE
     Dates: start: 20230818
  21. MAGNESIUM OXIDE [Concomitant]
     Active Substance: MAGNESIUM OXIDE
     Dates: start: 20230818
  22. MOSAPRIDE CITRATE [Concomitant]
     Active Substance: MOSAPRIDE CITRATE
     Dates: start: 20230818
  23. LORATADINE [Concomitant]
     Active Substance: LORATADINE
     Dates: start: 20230821
  24. DESONIDE [Concomitant]
     Active Substance: DESONIDE
     Dates: start: 20230821
  25. BENZYDAMINE [Concomitant]
     Active Substance: BENZYDAMINE
     Dates: start: 20230906
  26. MEGESTROL ACETATE [Concomitant]
     Active Substance: MEGESTROL ACETATE
     Dates: start: 20231124
  27. ERDOSTEINE [Concomitant]
     Active Substance: ERDOSTEINE
     Dates: start: 20231115
  28. GABAPENTIN [Concomitant]
     Active Substance: GABAPENTIN
     Dates: start: 20231018, end: 20231214

REACTIONS (2)
  - COVID-19 pneumonia [None]
  - Pneumonia [None]

NARRATIVE: CASE EVENT DATE: 20231208
